FAERS Safety Report 21518024 (Version 14)
Quarter: 2024Q4

REPORT INFORMATION
  Report Type: Report from Study
  Country: DE (occurrence: DE)
  Receive Date: 20221028
  Receipt Date: 20241007
  Transmission Date: 20250115
  Serious: Yes (Other)
  Sender: TAKEDA
  Company Number: DE-TAKEDA-2022TUS078221

PATIENT
  Age: 18 Year
  Sex: Female
  Weight: 63 kg

DRUGS (8)
  1. LANADELUMAB [Suspect]
     Active Substance: LANADELUMAB
     Indication: Hereditary angioedema
     Dosage: 300 MILLIGRAM, Q2WEEKS
     Route: 065
     Dates: start: 20210618
  2. Maxim [Concomitant]
     Indication: Endometriosis
     Dosage: UNK
     Route: 048
     Dates: start: 20200901
  3. SUMATRIPTAN [Concomitant]
     Active Substance: SUMATRIPTAN
     Indication: Migraine
     Dosage: 50 MILLIGRAM
     Route: 048
     Dates: start: 20201001
  4. DESLORATADINE [Concomitant]
     Active Substance: DESLORATADINE
     Indication: Cold urticaria
     Dosage: 10 MILLIGRAM
     Route: 048
     Dates: start: 20211210
  5. NALOXONE HYDROCHLORIDE\TILIDINE HYDROCHLORIDE [Concomitant]
     Active Substance: NALOXONE HYDROCHLORIDE\TILIDINE HYDROCHLORIDE
     Indication: Endometriosis
     Dosage: UNK
     Route: 048
     Dates: start: 20220518, end: 20230715
  6. BUPROPION [Concomitant]
     Active Substance: BUPROPION
     Indication: Depression
     Dosage: 300 MILLIGRAM
     Route: 048
     Dates: start: 20220501
  7. PYLERA [Concomitant]
     Active Substance: BISMUTH SUBCITRATE POTASSIUM\METRONIDAZOLE\TETRACYCLINE HYDROCHLORIDE
     Indication: Helicobacter gastritis
     Dosage: UNK
     Route: 048
     Dates: start: 20230610, end: 20230620
  8. PANTOPRAZOLE [Concomitant]
     Active Substance: PANTOPRAZOLE
     Indication: Helicobacter gastritis
     Dosage: 40 MILLIGRAM
     Route: 048
     Dates: start: 20230610, end: 20230620

REACTIONS (5)
  - Hemiparesis [Not Recovered/Not Resolved]
  - Hypoaesthesia [Recovered/Resolved]
  - Arthralgia [Recovered/Resolved]
  - Neck pain [Recovered/Resolved]
  - Neuralgia [Not Recovered/Not Resolved]

NARRATIVE: CASE EVENT DATE: 20220731
